FAERS Safety Report 6107301-X (Version None)
Quarter: 2009Q1

REPORT INFORMATION
  Report Type: 
  Country: None (occurrence: None)
  Receive Date: 20090305
  Receipt Date: 20090220
  Transmission Date: 20090719
  Serious: Yes (Other)
  Sender: FDA-Public Use
  Company Number: B0561379A

PATIENT
  Age: 24 Year
  Sex: 0

DRUGS (6)
  1. ZIDOVUDINE [Suspect]
     Indication: HIV INFECTION
  2. LAMIVUDINE [Suspect]
     Indication: HIV INFECTION
  3. FLUCONAZOLE [Suspect]
  4. FLUCYTOSINE [Concomitant]
  5. AMPHOTERICIN B [Concomitant]
  6. VORICONAZOLE [Concomitant]

REACTIONS (4)
  - CRYPTOCOCCOSIS [None]
  - DRUG RESISTANCE [None]
  - ENCEPHALITIS [None]
  - IMMUNE RECONSTITUTION SYNDROME [None]
